FAERS Safety Report 4707452-8 (Version None)
Quarter: 2005Q3

REPORT INFORMATION
  Report Type: 
  Country: None (occurrence: None)
  Receive Date: 20050701
  Receipt Date: 20050616
  Transmission Date: 20060218
  Serious: Yes (Disabling)
  Sender: FDA-Public Use
  Company Number: 2005S1005068

PATIENT
  Age: 65 Year
  Sex: Male

DRUGS (8)
  1. APOMORPHINE HYDROCHLORIDE (APOMORPHINE HYDROCHLORIDE) [Suspect]
     Indication: PARKINSON'S DISEASE
     Dosage: 200 MG; QD; SC
     Route: 058
  2. CARBIDOPA AND LEVODOPA [Concomitant]
  3. LEVODOPA/BENSERAZIDE HYDROCHLORIDE [Concomitant]
  4. RIVASTIGMINE [Concomitant]
  5. QUETIAPINE FUMARATE [Concomitant]
  6. LATANOPROST [Concomitant]
  7. SOTALOL HCL [Concomitant]
  8. AMITRIPTYLINE HCL [Concomitant]

REACTIONS (5)
  - CONDITION AGGRAVATED [None]
  - FALL [None]
  - GENERAL PHYSICAL HEALTH DETERIORATION [None]
  - PHARMACEUTICAL PRODUCT COMPLAINT [None]
  - URINARY INCONTINENCE [None]
